FAERS Safety Report 20382009 (Version 1)
Quarter: 2022Q1

REPORT INFORMATION
  Report Type: Spontaneous
  Country: US (occurrence: None)
  Receive Date: 20220126
  Receipt Date: 20220126
  Transmission Date: 20220423
  Serious: Yes (Hospitalization)
  Sender: FDA-Public Use
  Company Number: None

PATIENT
  Age: 68 Year
  Sex: Female

DRUGS (1)
  1. DIMETHYL FUMARATE [Suspect]
     Active Substance: DIMETHYL FUMARATE
     Dosage: FREQUENCY : DAILY;?
     Route: 048
     Dates: start: 200801

REACTIONS (3)
  - Muscular weakness [None]
  - Urinary tract infection [None]
  - Balance disorder [None]

NARRATIVE: CASE EVENT DATE: 20211027
